FAERS Safety Report 6510240-3 (Version None)
Quarter: 2009Q4

REPORT INFORMATION
  Report Type: 
  Country: None (occurrence: None)
  Receive Date: 20091221
  Receipt Date: 20091221
  Transmission Date: 20100525
  Serious: No
  Sender: FDA-Public Use
  Company Number: None

PATIENT
  Sex: Male
  Weight: 72 kg

DRUGS (1)
  1. CHLORPROMAZINE TABLET 100MG UDL [Suspect]
     Dosage: 100MG 3 TIME A DAY PO
     Route: 048
     Dates: start: 20091210, end: 20091211

REACTIONS (1)
  - TACHYCARDIA [None]
